FAERS Safety Report 7608397-6 (Version None)
Quarter: 2011Q3

REPORT INFORMATION
  Report Type: 
  Country: None (occurrence: None)
  Receive Date: 20110713
  Receipt Date: 20110713
  Transmission Date: 20111222
  Serious: Yes (Other)
  Sender: FDA-Public Use
  Company Number: None

PATIENT
  Age: 51 Year
  Sex: Female
  Weight: 85.2762 kg

DRUGS (1)
  1. METFORMIN HCL [Suspect]
     Dosage: 1000 MG BID ORAL
     Route: 048
     Dates: start: 20110602, end: 20110630

REACTIONS (1)
  - DIARRHOEA [None]
